FAERS Safety Report 9303254 (Version 1)
Quarter: 2013Q2

REPORT INFORMATION
  Report Type: Spontaneous
  Country: US (occurrence: None)
  Receive Date: 20130521
  Receipt Date: 20130521
  Transmission Date: 20140414
  Serious: Yes (Life-Threatening, Hospitalization, Other)
  Sender: FDA-Public Use
  Company Number: None

PATIENT
  Age: 10 Year
  Sex: Male
  Weight: 28.12 kg

DRUGS (2)
  1. CELEXA [Suspect]
     Indication: POST-TRAUMATIC STRESS DISORDER
     Route: 048
     Dates: start: 20130313, end: 20130422
  2. CELEXA [Suspect]
     Indication: AFFECTIVE DISORDER
     Route: 048
     Dates: start: 20130313, end: 20130422

REACTIONS (4)
  - Suicidal ideation [None]
  - Homicidal ideation [None]
  - Agitation [None]
  - Anger [None]
